FAERS Safety Report 18754699 (Version 2)
Quarter: 2021Q1

REPORT INFORMATION
  Report Type: Spontaneous
  Country: US (occurrence: US)
  Receive Date: 20210119
  Receipt Date: 20210322
  Transmission Date: 20210419
  Serious: No
  Sender: FDA-Public Use
  Company Number: US-BIOVITRUM-2021US0426

PATIENT
  Sex: Male
  Weight: 6 kg

DRUGS (5)
  1. SYNAGIS [Suspect]
     Active Substance: PALIVIZUMAB
     Indication: LOW BIRTH WEIGHT BABY
  2. SYNAGIS [Suspect]
     Active Substance: PALIVIZUMAB
     Indication: ATRIAL SEPTAL DEFECT
  3. POLY?VITA WITH IRON [Concomitant]
  4. SYNAGIS [Suspect]
     Active Substance: PALIVIZUMAB
     Indication: PREMATURE BABY
     Dosage: SYNAGIS 100MG/1ML VL LIQUID
     Route: 030
  5. SYNAGIS [Suspect]
     Active Substance: PALIVIZUMAB
     Indication: BRONCHOPULMONARY DYSPLASIA

REACTIONS (1)
  - Pyrexia [Unknown]
